FAERS Safety Report 16414488 (Version 3)
Quarter: 2019Q3

REPORT INFORMATION
  Report Type: Spontaneous
  Country: ES (occurrence: ES)
  Receive Date: 20190611
  Receipt Date: 20190911
  Transmission Date: 20191004
  Serious: Yes (Other)
  Sender: FDA-Public Use
  Company Number: ES-ASTRAZENECA-2019SE83840

PATIENT
  Age: 2 Month
  Sex: Male
  Weight: 6.5 kg

DRUGS (5)
  1. OP2455 (OMEPRAZOLE) [Concomitant]
     Active Substance: OMEPRAZOLE
     Indication: INFANTILE COLIC
     Route: 048
     Dates: start: 20190424, end: 20190529
  2. REUTER [Concomitant]
     Indication: INFANTILE COLIC
     Route: 048
     Dates: start: 20190408
  3. OP2455 (OMEPRAZOLE) [Suspect]
     Active Substance: OMEPRAZOLE
     Indication: INFANTILE SPITTING UP
     Dosage: NON AZ
     Route: 048
     Dates: start: 20190424, end: 20190516
  4. DELTIUS [Concomitant]
     Active Substance: CHOLECALCIFEROL
     Indication: PROPHYLAXIS
     Route: 048
     Dates: start: 20190328
  5. MINOXIDIL. [Suspect]
     Active Substance: MINOXIDIL
     Indication: INFANTILE SPITTING UP
     Route: 048
     Dates: start: 20190424, end: 20190516

REACTIONS (2)
  - Product formulation issue [Recovered/Resolved]
  - Hypertrichosis [Recovering/Resolving]

NARRATIVE: CASE EVENT DATE: 20190424
